FAERS Safety Report 12666931 (Version 1)
Quarter: 2016Q3

REPORT INFORMATION
  Report Type: Spontaneous
  Country: US (occurrence: None)
  Receive Date: 20160818
  Receipt Date: 20160818
  Transmission Date: 20161109
  Serious: Yes (Other)
  Sender: FDA-Public Use
  Company Number: None

PATIENT
  Age: 51 Year
  Sex: Female
  Weight: 53.98 kg

DRUGS (12)
  1. MORPHINE [Concomitant]
     Active Substance: MORPHINE
  2. FOLIC ACID. [Concomitant]
     Active Substance: FOLIC ACID
  3. FLUDROCORTISONE [Suspect]
     Active Substance: FLUDROCORTISONE
     Indication: ORTHOSTATIC HYPOTENSION
     Route: 048
     Dates: start: 20160727, end: 20160802
  4. MIDODRINE [Suspect]
     Active Substance: MIDODRINE
     Indication: HYPOTENSION
     Route: 048
     Dates: start: 20160812, end: 20160815
  5. PANTOPRAZOLE [Concomitant]
     Active Substance: PANTOPRAZOLE SODIUM
  6. VITAMIN B12 [Concomitant]
     Active Substance: CYANOCOBALAMIN
  7. AMITIZA [Concomitant]
     Active Substance: LUBIPROSTONE
  8. LORAZEPAM. [Concomitant]
     Active Substance: LORAZEPAM
  9. GABAPENTIN. [Concomitant]
     Active Substance: GABAPENTIN
  10. MULTI VITAMIN FOR WOMEN OVER 50 [Concomitant]
  11. PROMETHAZINE [Concomitant]
     Active Substance: PROMETHAZINE\PROMETHAZINE HYDROCHLORIDE
  12. TIZNIDINE [Concomitant]

REACTIONS (3)
  - Oedema peripheral [None]
  - Oedema [None]
  - Throat tightness [None]

NARRATIVE: CASE EVENT DATE: 20160729
